FAERS Safety Report 22346979 (Version 2)
Quarter: 2023Q2

REPORT INFORMATION
  Report Type: Spontaneous
  Country: GB (occurrence: GB)
  Receive Date: 20230520
  Receipt Date: 20230616
  Transmission Date: 20230721
  Serious: Yes (Hospitalization, Other)
  Sender: FDA-Public Use
  Company Number: GB-Accord-358492

PATIENT
  Age: 53 Year
  Sex: Female

DRUGS (7)
  1. CARBOPLATIN [Suspect]
     Active Substance: CARBOPLATIN
     Indication: Chemotherapy
     Dosage: 3 WEEKLY
     Dates: start: 20230117, end: 202305
  2. PACLITAXEL [Suspect]
     Active Substance: PACLITAXEL
     Indication: Chemotherapy
     Dosage: 3 WEEKLY
     Dates: start: 20230117, end: 20230117
  3. ABRAXANE [Suspect]
     Active Substance: PACLITAXEL
     Indication: Chemotherapy
     Dates: start: 20230315, end: 20230315
  4. CARBOPLATIN [Suspect]
     Active Substance: CARBOPLATIN
     Indication: Chemotherapy
  5. CARBOPLATIN [Suspect]
     Active Substance: CARBOPLATIN
     Indication: Chemotherapy
     Dates: start: 20230202
  6. CARBOPLATIN [Suspect]
     Active Substance: CARBOPLATIN
     Indication: Chemotherapy
     Dates: start: 20230315
  7. CARBOPLATIN [Suspect]
     Active Substance: CARBOPLATIN
     Indication: Chemotherapy
     Dates: start: 20230502

REACTIONS (6)
  - Drug hypersensitivity [Unknown]
  - Acute kidney injury [Unknown]
  - Liver function test abnormal [Unknown]
  - Therapy partial responder [Unknown]
  - Myelosuppression [Unknown]
  - Alanine aminotransferase increased [Unknown]

NARRATIVE: CASE EVENT DATE: 20230315
